FAERS Safety Report 9976233 (Version 1)
Quarter: 2014Q1

REPORT INFORMATION
  Report Type: Report from Study
  Country: LB (occurrence: LB)
  Receive Date: 20140306
  Receipt Date: 20140306
  Transmission Date: 20141002
  Serious: Yes (Hospitalization)
  Sender: FDA-Public Use
  Company Number: PHHY2014LB027861

PATIENT
  Age: 68 Year
  Sex: Female

DRUGS (6)
  1. ACLASTA [Suspect]
     Dosage: UNK UKN, UNK
     Route: 042
  2. OSSOPAN [Concomitant]
     Dosage: 1 DF, UNK
     Route: 048
  3. SYMBICORT [Concomitant]
     Dosage: 1 PUFF
     Route: 048
  4. LIPODAR [Concomitant]
     Dosage: 10 MG, UNK
     Route: 048
  5. SIOFOR [Concomitant]
     Dosage: 500 MG, UNK
     Route: 048
  6. DEANXIT [Concomitant]
     Dosage: 1 DF, UNK

REACTIONS (1)
  - Cardiac disorder [Unknown]
